FAERS Safety Report 7797355-7 (Version None)
Quarter: 2011Q4

REPORT INFORMATION
  Report Type: 
  Country: None (occurrence: None)
  Receive Date: 20111005
  Receipt Date: 20110927
  Transmission Date: 20120403
  Serious: Yes (Hospitalization, Other)
  Sender: FDA-Public Use
  Company Number: US-RB-032398-11

PATIENT
  Sex: Female
  Weight: 2 kg

DRUGS (1)
  1. SUBUTEX [Suspect]
     Indication: DRUG DEPENDENCE
     Dosage: 4 MG SL QD
     Route: 060
     Dates: start: 20110222, end: 20110711

REACTIONS (8)
  - EXPOSURE DURING BREAST FEEDING [None]
  - PREMATURE BABY [None]
  - RESPIRATORY DISORDER [None]
  - SMALL FOR DATES BABY [None]
  - FEEDING DISORDER [None]
  - MATERNAL EXPOSURE DURING PREGNANCY [None]
  - MATERNAL DRUGS AFFECTING FOETUS [None]
  - FEEDING DISORDER NEONATAL [None]
